FAERS Safety Report 8234887-1 (Version None)
Quarter: 2012Q1

REPORT INFORMATION
  Report Type: 
  Country: None (occurrence: None)
  Receive Date: 20120326
  Receipt Date: 20120319
  Transmission Date: 20120608
  Serious: Yes (Other)
  Sender: FDA-Public Use
  Company Number: AU-PFIZER INC-2012071298

PATIENT
  Sex: Male

DRUGS (2)
  1. CAVERJECT IMPULSE [Suspect]
     Dosage: 10 UG, UNK
  2. CIALIS [Interacting]

REACTIONS (3)
  - ERECTION INCREASED [None]
  - DRUG INTERACTION [None]
  - ERECTILE DYSFUNCTION [None]
